FAERS Safety Report 8596401 (Version 3)
Quarter: 2014Q1

REPORT INFORMATION
  Report Type: Spontaneous
  Country: US (occurrence: US)
  Receive Date: 20120605
  Receipt Date: 20140108
  Transmission Date: 20141002
  Serious: Yes (Hospitalization, Other)
  Sender: FDA-Public Use
  Company Number: US-ASTRAZENECA-2012SE35624

PATIENT
  Age: 59 Year
  Sex: Female
  Weight: 81.6 kg

DRUGS (19)
  1. NEXIUM [Suspect]
     Indication: GASTROOESOPHAGEAL REFLUX DISEASE
     Route: 048
  2. NEXIUM [Suspect]
     Indication: GASTROOESOPHAGEAL REFLUX DISEASE
     Route: 048
     Dates: start: 20120103
  3. TUMS [Concomitant]
     Dates: start: 20120103
  4. ALKA SELTZER [Concomitant]
  5. MILK OF MAGNESIA [Concomitant]
  6. GAVISCON [Concomitant]
  7. PEPTO BISMOL [Concomitant]
  8. ROLAIDS [Concomitant]
  9. MYLANTA [Concomitant]
  10. LAMICTAL [Concomitant]
     Dates: start: 20120103
  11. PLAVIX [Concomitant]
     Dates: start: 20120103
  12. AMBIEN [Concomitant]
     Dates: start: 20120103
  13. BENZONATATE [Concomitant]
     Dates: start: 20120103
  14. LISINOPRIL [Concomitant]
     Dates: start: 20120103
  15. TRAMADOL [Concomitant]
     Dates: start: 20130215
  16. PREDNISONE [Concomitant]
     Dates: start: 20130218
  17. LYRICA [Concomitant]
     Dates: start: 20130312
  18. XOPENEX [Concomitant]
     Dates: start: 20110615
  19. ZOLPIDEM [Concomitant]
     Dates: start: 20110818

REACTIONS (18)
  - Cerebrovascular accident [Unknown]
  - Neoplasm malignant [Unknown]
  - Bronchitis [Unknown]
  - Pneumonia [Unknown]
  - Thrombosis [Unknown]
  - Osteoporosis [Unknown]
  - Lower limb fracture [Unknown]
  - Hand fracture [Unknown]
  - Back pain [Unknown]
  - Pain in extremity [Unknown]
  - Musculoskeletal discomfort [Unknown]
  - Bone marrow disorder [Unknown]
  - Foot fracture [Unknown]
  - Bone pain [Unknown]
  - Osteogenesis imperfecta [Unknown]
  - Rheumatoid arthritis [Unknown]
  - Muscular weakness [Unknown]
  - Depression [Unknown]
